FAERS Safety Report 7527972-0 (Version None)
Quarter: 2011Q2

REPORT INFORMATION
  Report Type: 
  Country: None (occurrence: None)
  Receive Date: 20110517
  Receipt Date: 20100623
  Transmission Date: 20111010
  Serious: Yes (Hospitalization)
  Sender: FDA-Public Use
  Company Number: ALL1-2009-02094

PATIENT
  Age: 56 Year
  Sex: Male

DRUGS (2)
  1. FOSRENOL [Suspect]
     Indication: HYPERPHOSPHATAEMIA
     Dosage: 1000MG, 3X/DAY:TID (WITH MEALS), ORAL  500MG OTHER, WITH EACH MEAL, ORAL
     Route: 048
     Dates: start: 20090601, end: 20090601
  2. FOSRENOL [Suspect]
     Indication: HYPERPHOSPHATAEMIA
     Dosage: 1000MG, 3X/DAY:TID (WITH MEALS), ORAL  500MG OTHER, WITH EACH MEAL, ORAL
     Route: 048
     Dates: start: 20090601

REACTIONS (1)
  - ARTERIOVENOUS FISTULA THROMBOSIS [None]
